FAERS Safety Report 5415546-7 (Version None)
Quarter: 2007Q3

REPORT INFORMATION
  Report Type: 
  Country: None (occurrence: None)
  Receive Date: 20070815
  Receipt Date: 20070806
  Transmission Date: 20080115
  Serious: Yes (Life-Threatening, Hospitalization)
  Sender: FDA-Public Use
  Company Number: B0477311A

PATIENT
  Age: 81 Year
  Sex: Female
  Weight: 94 kg

DRUGS (10)
  1. AVANDIA [Suspect]
     Dosage: 4MG UNKNOWN
     Route: 048
     Dates: start: 20070606, end: 20070629
  2. METFORMIN HCL [Concomitant]
     Dosage: 1G TWICE PER DAY
     Route: 048
     Dates: start: 19950101
  3. ENALAPRIL MALEATE [Concomitant]
     Indication: HYPERTENSION
     Dosage: 40MG AT NIGHT
     Route: 048
     Dates: start: 19950101
  4. ATENOLOL [Concomitant]
     Indication: HYPERTENSION
     Dosage: 75MG IN THE MORNING
     Route: 048
     Dates: start: 20020101
  5. ASPIRIN [Concomitant]
     Dosage: 75MG IN THE MORNING
     Route: 048
     Dates: start: 20000101
  6. AMLODIPINE [Concomitant]
     Indication: HYPERTENSION
     Dosage: 10MG PER DAY
     Route: 048
     Dates: start: 19980101
  7. ATORVASTATIN CALCIUM [Concomitant]
     Dosage: 40MG AT NIGHT
     Route: 048
     Dates: start: 20050101
  8. UNKNOWN DRUG [Concomitant]
  9. TOLBUTAMIDE [Concomitant]
     Dosage: 500MG TWICE PER DAY
     Route: 048
     Dates: start: 19940101
  10. SOFTCLIX [Concomitant]

REACTIONS (3)
  - BLOOD POTASSIUM INCREASED [None]
  - BLOOD UREA INCREASED [None]
  - GLOMERULAR FILTRATION RATE DECREASED [None]
